FAERS Safety Report 10483854 (Version 1)
Quarter: 2014Q3

REPORT INFORMATION
  Report Type: Spontaneous
  Country: IT (occurrence: None)
  Receive Date: 20140926
  Receipt Date: 20140926
  Transmission Date: 20150326
  Serious: Yes (Hospitalization)
  Sender: FDA-Public Use
  Company Number: 7322711

PATIENT
  Age: 74 Year
  Sex: Male

DRUGS (1)
  1. EUTIROX [Suspect]
     Active Substance: LEVOTHYROXINE SODIUM
     Indication: BLOOD THYROID STIMULATING HORMONE INCREASED
     Route: 048
     Dates: start: 20131001, end: 20131001

REACTIONS (4)
  - Urticaria [None]
  - Pruritus generalised [None]
  - Erythema [None]
  - Dysphonia [None]

NARRATIVE: CASE EVENT DATE: 20131001
